FAERS Safety Report 5082761-4 (Version None)
Quarter: 2006Q3

REPORT INFORMATION
  Report Type: 
  Country: None (occurrence: None)
  Receive Date: 20060814
  Receipt Date: 20060802
  Transmission Date: 20061208
  Serious: Yes (Hospitalization, Other)
  Sender: FDA-Public Use
  Company Number: 2005046263

PATIENT
  Age: 48 Year
  Sex: Female
  Weight: 52.3 kg

DRUGS (9)
  1. SUTENT [Suspect]
     Indication: RENAL CELL CARCINOMA STAGE UNSPECIFIED
     Dosage: 50 MG (50 MG, 1 IN 1 D), ORAL
     Route: 048
     Dates: start: 20050118, end: 20050214
  2. OXYCODONE (OXYCODONE) [Concomitant]
  3. LISINOPRIL [Concomitant]
  4. ACETAMINOPHEN [Concomitant]
  5. MIRTAZAPINE [Concomitant]
  6. ONDANSETRON [Concomitant]
  7. PROCHLORPERAZINE MALEATE [Concomitant]
  8. LEVAQUIN [Concomitant]
  9. LORAZEPAM [Concomitant]

REACTIONS (2)
  - CEREBRAL HAEMORRHAGE [None]
  - MENTAL STATUS CHANGES [None]
